FAERS Safety Report 9052688 (Version 4)
Quarter: 2013Q1

REPORT INFORMATION
  Report Type: Spontaneous
  Country: US (occurrence: US)
  Receive Date: 20130207
  Receipt Date: 20130326
  Transmission Date: 20140127
  Serious: No
  Sender: FDA-Public Use
  Company Number: US-PFIZER INC-2013042947

PATIENT
  Age: 82 Year
  Sex: Female
  Weight: 65.76 kg

DRUGS (1)
  1. ZYVOX [Suspect]
     Indication: CYSTITIS
     Dosage: 600 MG, 2X/DAY
     Route: 048

REACTIONS (3)
  - Drug ineffective [Unknown]
  - Cystitis [Unknown]
  - Malaise [Unknown]
